FAERS Safety Report 4661830-4 (Version None)
Quarter: 2005Q2

REPORT INFORMATION
  Report Type: 
  Country: None (occurrence: None)
  Receive Date: 20050511
  Receipt Date: 20050511
  Transmission Date: 20051028
  Serious: Yes (Hospitalization)
  Sender: FDA-Public Use
  Company Number: None

PATIENT
  Age: 72 Year
  Sex: Male

DRUGS (8)
  1. WARFARIN [Suspect]
     Indication: CARDIAC VALVE DISEASE
     Dosage: 7.5 MG  QD
     Dates: start: 20040901
  2. GEMFIBROZIL [Suspect]
     Indication: BLOOD TRIGLYCERIDES
     Dosage: 600 MG BID
     Dates: start: 19980226
  3. GLYBURIDE [Concomitant]
  4. LISINOPRIL [Concomitant]
  5. ASPIRIN [Concomitant]
  6. METOPROLOL [Concomitant]
  7. DIGOXIN [Concomitant]
  8. LORATADINE [Concomitant]

REACTIONS (1)
  - NO ADVERSE EFFECT [None]
